FAERS Safety Report 10055555 (Version 1)
Quarter: 2014Q2

REPORT INFORMATION
  Report Type: Spontaneous
  Country: US (occurrence: None)
  Receive Date: 20140402
  Receipt Date: 20140402
  Transmission Date: 20141212
  Serious: Yes (Death)
  Sender: FDA-Public Use
  Company Number: None

PATIENT
  Sex: Female

DRUGS (4)
  1. N-ACETYLCYSTEINE [Suspect]
     Indication: IDIOPATHIC PULMONARY FIBROSIS
  2. INTERFERON [Suspect]
     Indication: IDIOPATHIC PULMONARY FIBROSIS
  3. AZATHIOPRINE [Concomitant]
  4. PREDNISONE [Concomitant]

REACTIONS (1)
  - Drug ineffective [None]
